FAERS Safety Report 9522299 (Version 1)
Quarter: 2013Q1

REPORT INFORMATION
  Report Type: Spontaneous
  Country: US (occurrence: None)
  Receive Date: 20130305
  Receipt Date: 20130305
  Transmission Date: 20140127
  Serious: Yes (Hospitalization)
  Sender: FDA-Public Use
  Company Number: 163-21880-12063742

PATIENT
  Age: 63 Year
  Sex: Female

DRUGS (16)
  1. REVLIMID (LENALIDOMIDE) (CAPSULES) [Suspect]
     Indication: PLASMA CELL MYELOMA
     Dosage: 15 MG, 21 IN 28 D, PO
     Route: 048
     Dates: start: 20100401, end: 2010
  2. ADVAIR (SERETIDE MITE) (UNKNOWN) [Concomitant]
  3. AVELOX (MOXIFLOXACIN HYDROCHLORIDE) (UNKNOWN) [Concomitant]
  4. COUMADIN (WARFARIN SODIUM) (UNKNOWN) [Concomitant]
  5. HYDROXYZINE HCL (HYDROXYZINE HYDROCHLORIDE) (UNKNOWN) [Concomitant]
  6. LEVOTHYROXIN (LEVOTHYROXINE SODIUM) (UNKNOWN) [Concomitant]
  7. LOPRESSOR (METOPROLOL TARTRATE) (UNKNOWN) [Concomitant]
  8. MULTIVITAMIN (MULTIVITAMINS) (UNKNOWN) [Concomitant]
  9. NEURONTIN (GABAPENTIN) (UNKNOWN) [Concomitant]
  10. OXYCODONE (OXYCODONE) (UNKNOWN) (OXYCODONE) [Concomitant]
  11. POTASSIUM (POTASSIUM) (UNKNOWN) [Concomitant]
  12. SINGULAIR [Concomitant]
  13. VENTOLIN (SALBUTAMOL) (UNKNOWN) [Concomitant]
  14. VITAMIN B6 (PYRIDOXINE HYDROCHLORIDE) (UNKNOWN) [Concomitant]
  15. ZOFRAN (ONDANSETRON HYDROCHLORIDE) (UNKNOWN) [Concomitant]
  16. ZOMETA (ZOLEDRONIC ACID) (UNKNOWN) [Concomitant]

REACTIONS (2)
  - Lobar pneumonia [None]
  - Fatigue [None]
